FAERS Safety Report 9305895 (Version 2)
Quarter: 2013Q2

REPORT INFORMATION
  Report Type: Spontaneous
  Country: US (occurrence: None)
  Receive Date: 20130520
  Receipt Date: 20130529
  Transmission Date: 20140414
  Serious: Yes (Hospitalization)
  Sender: FDA-Public Use
  Company Number: 2013AP005297

PATIENT
  Sex: Female

DRUGS (3)
  1. NEVIRAPINE [Suspect]
     Indication: HIV INFECTION
  2. LOPINAVIR W/RITONAVIR [Concomitant]
  3. COTRIMOXAZOLE [Concomitant]

REACTIONS (5)
  - Rash papular [None]
  - Blister [None]
  - Mouth ulceration [None]
  - Conjunctival hyperaemia [None]
  - Skin toxicity [None]
